FAERS Safety Report 25274199 (Version 1)
Quarter: 2025Q2

REPORT INFORMATION
  Report Type: Spontaneous
  Country: US (occurrence: US)
  Receive Date: 20250506
  Receipt Date: 20250506
  Transmission Date: 20250717
  Serious: No
  Sender: Haleon PLC
  Company Number: US-HALEON-2240937

PATIENT

DRUGS (1)
  1. ALLI [Suspect]
     Active Substance: ORLISTAT
     Indication: Weight decreased

REACTIONS (6)
  - Restless legs syndrome [Unknown]
  - Asthenia [Unknown]
  - Increased appetite [Unknown]
  - Restless arm syndrome [Unknown]
  - Dyschezia [Unknown]
  - Abdominal pain upper [Unknown]
